FAERS Safety Report 6795231-X (Version None)
Quarter: 2010Q2

REPORT INFORMATION
  Report Type: 
  Country: None (occurrence: None)
  Receive Date: 20100624
  Receipt Date: 20100624
  Transmission Date: 20101027
  Serious: No
  Sender: FDA-Public Use
  Company Number: None

PATIENT
  Sex: Female

DRUGS (2)
  1. VASOTEC [Suspect]
     Indication: HYPERTENSION
     Dosage: 1/26/04 BID PO
     Route: 048
     Dates: start: 19991116, end: 20040126
  2. MONOPRIL [Suspect]
     Indication: HYPERTENSION
     Dosage: 2/1/1999 DAILY PO
     Route: 048
     Dates: start: 19990201, end: 19991116

REACTIONS (2)
  - COUGH [None]
  - DRUG INTOLERANCE [None]
